FAERS Safety Report 8342646-4 (Version None)
Quarter: 2012Q2

REPORT INFORMATION
  Report Type: 
  Country: None (occurrence: None)
  Receive Date: 20120508
  Receipt Date: 20070123
  Transmission Date: 20120825
  Serious: No
  Sender: FDA-Public Use
  Company Number: 2007BI001796

PATIENT
  Age: 44 Year
  Sex: Female
  Weight: 46 kg

DRUGS (5)
  1. TOPAMAX [Concomitant]
     Indication: CONVULSION
  2. ATIVAN [Concomitant]
     Indication: CONVULSION
  3. BETASERON [Concomitant]
     Indication: MULTIPLE SCLEROSIS
  4. TYSABRI [Suspect]
     Indication: MULTIPLE SCLEROSIS
     Route: 042
     Dates: start: 20070123, end: 20070123
  5. COPAXONE [Concomitant]
     Indication: MULTIPLE SCLEROSIS

REACTIONS (4)
  - PANIC ATTACK [None]
  - INFUSION RELATED REACTION [None]
  - HYPERSENSITIVITY [None]
  - STRESS [None]
